FAERS Safety Report 6317619-3 (Version None)
Quarter: 2009Q3

REPORT INFORMATION
  Report Type: 
  Country: None (occurrence: None)
  Receive Date: 20090821
  Receipt Date: 20090819
  Transmission Date: 20100115
  Serious: Yes (Hospitalization)
  Sender: FDA-Public Use
  Company Number: KR-BRISTOL-MYERS SQUIBB COMPANY-14717672

PATIENT
  Age: 55 Year
  Sex: Male
  Weight: 71 kg

DRUGS (9)
  1. CISPLATIN [Suspect]
     Indication: METASTATIC GASTRIC CANCER
     Dosage: 1X/DAY EVERY 3 WEEKS RECEIVED 7TH CYCLE BY MAY09 (31JUL08 TO 25MAY09) 8TH CYCLE ON 07JUL09
     Route: 042
     Dates: start: 20080731
  2. SUTENT [Suspect]
     Indication: METASTATIC GASTRIC CANCER
     Dosage: 2/1 SCHEDULE;INTPT ON 08JUL09 RECEIVED 7TH CYCLE BY MAY09(31JUL08-25MAY09) 8TH CYCLE ON 07JUL09
     Route: 048
     Dates: start: 20080731
  3. XELODA [Suspect]
     Indication: METASTATIC GASTRIC CANCER
     Dosage: DAILY 1-14;INTPT ON 08JUL09 RECEIVED 7TH CYCLE BY MAY09 (31JUL08 TO 25MAY09) 8TH CYCLE ON 07JUL09
     Route: 048
     Dates: start: 20080731
  4. ULTRACET [Concomitant]
     Indication: PAIN PROPHYLAXIS
     Dosage: 3 DOSAGEFORM = 3 TABS
     Route: 048
     Dates: start: 20090623, end: 20090628
  5. ENSURE [Concomitant]
     Indication: NUTRITIONAL SUPPORT
     Dosage: ENSURE LIQUID
     Route: 048
     Dates: start: 20090622, end: 20090704
  6. KYTRIL [Concomitant]
     Indication: NAUSEA
     Route: 042
     Dates: start: 20090707, end: 20090707
  7. MANNITOL [Concomitant]
     Indication: CHEMOTHERAPY
     Dosage: MANNITOL 15%
     Route: 042
     Dates: start: 20090707
  8. DEXAMETHASONE [Concomitant]
     Indication: CHEMOTHERAPY
     Dosage: ALSO TAKEN IV DEXAMETHASONE 10 MG 07JUL09
     Route: 048
     Dates: start: 20090707, end: 20090708
  9. MAXOLON [Concomitant]
     Indication: NAUSEA
     Route: 048
     Dates: start: 20090707, end: 20090708

REACTIONS (1)
  - ABDOMINAL PAIN [None]
